FAERS Safety Report 17334659 (Version 3)
Quarter: 2024Q4

REPORT INFORMATION
  Report Type: Spontaneous
  Country: CA (occurrence: None)
  Receive Date: 20200128
  Receipt Date: 20241004
  Transmission Date: 20250115
  Serious: Yes (Other)
  Sender: ORION
  Company Number: CA-ORION CORPORATION ORION PHARMA-TREX2017-2750

PATIENT
  Age: 36 Year
  Sex: Female

DRUGS (2)
  1. METHOTREXATE [Suspect]
     Active Substance: METHOTREXATE
     Indication: Rheumatoid arthritis
     Dosage: 2.5 MG TABLETS 8 TABS ONCE WEEKLY
     Dates: start: 201608
  2. XELJANZ [Suspect]
     Active Substance: TOFACITINIB CITRATE
     Indication: Rheumatoid arthritis
     Dates: start: 20170616, end: 2022

REACTIONS (5)
  - Therapeutic product effect incomplete [Unknown]
  - Malaise [Unknown]
  - Oropharyngeal pain [Unknown]
  - Pyrexia [Unknown]
  - Basal cell carcinoma [Unknown]

NARRATIVE: CASE EVENT DATE: 20170829
